FAERS Safety Report 8078438-3 (Version None)
Quarter: 2012Q1

REPORT INFORMATION
  Report Type: 
  Country: None (occurrence: None)
  Receive Date: 20120127
  Receipt Date: 20120127
  Transmission Date: 20120608
  Serious: Yes (Hospitalization)
  Sender: FDA-Public Use
  Company Number: None

PATIENT
  Age: 52 Year
  Sex: Female
  Weight: 62.17 kg

DRUGS (1)
  1. PRADAXA [Suspect]
     Indication: ATRIAL FIBRILLATION
     Dosage: PRADAXA 150 MG BID PO
     Route: 048

REACTIONS (7)
  - CONSTIPATION [None]
  - GASTROINTESTINAL HAEMORRHAGE [None]
  - ACTIVATED PARTIAL THROMBOPLASTIN TIME PROLONGED [None]
  - PROTHROMBIN TIME PROLONGED [None]
  - SHOULDER OPERATION [None]
  - INTERNATIONAL NORMALISED RATIO INCREASED [None]
  - MUSCULOSKELETAL PAIN [None]
